FAERS Safety Report 8815387 (Version 1)
Quarter: 2012Q4

REPORT INFORMATION
  Report Type: 
  Country: BR (occurrence: BR)
  Receive Date: 20120928
  Receipt Date: 20120928
  Transmission Date: 20130627
  Serious: Yes (Death, Hospitalization, Disabling)
  Sender: FDA-Public Use
  Company Number: BR-B.I. PHARMACEUTICALS,INC./RIDGEFIELD-2012-BR-01099BR

PATIENT
  Age: 70 Year
  Sex: Male

DRUGS (2)
  1. MICARDIS [Suspect]
     Indication: HYPERTENSION
     Dosage: 80 mg
     Route: 048
     Dates: start: 2006, end: 20090205
  2. ROHYPNOL [Concomitant]
     Indication: INSOMNIA
     Dates: start: 1990, end: 20090205

REACTIONS (4)
  - Embolism [Fatal]
  - Infection [Unknown]
  - Dyspnoea [Unknown]
  - Chest pain [Unknown]
